FAERS Safety Report 6842412-2 (Version None)
Quarter: 2010Q3

REPORT INFORMATION
  Report Type: 
  Country: None (occurrence: None)
  Receive Date: 20100714
  Receipt Date: 20070825
  Transmission Date: 20110219
  Serious: No
  Sender: FDA-Public Use
  Company Number: US-PFIZER INC-2007062314

PATIENT
  Age: 59 Year
  Sex: Male
  Weight: 93.181 kg

DRUGS (2)
  1. CHANTIX [Suspect]
     Indication: TOBACCO USER
     Dates: start: 20070713, end: 20070721
  2. PRILOSEC [Concomitant]

REACTIONS (7)
  - ABDOMINAL DISCOMFORT [None]
  - AMNESIA [None]
  - DIARRHOEA [None]
  - DISORIENTATION [None]
  - DIZZINESS [None]
  - FEELING ABNORMAL [None]
  - HEADACHE [None]
